FAERS Safety Report 7288489-4 (Version None)
Quarter: 2011Q1

REPORT INFORMATION
  Report Type: 
  Country: None (occurrence: None)
  Receive Date: 20110211
  Receipt Date: 20110208
  Transmission Date: 20110831
  Serious: Yes (Other)
  Sender: FDA-Public Use
  Company Number: B0699179A

PATIENT
  Age: 7 Year
  Sex: Male

DRUGS (1)
  1. AVAMYS [Suspect]
     Route: 065
     Dates: start: 20100601

REACTIONS (1)
  - FAILURE TO THRIVE [None]
